FAERS Safety Report 5054971-3 (Version None)
Quarter: 2006Q3

REPORT INFORMATION
  Report Type: 
  Country: None (occurrence: None)
  Receive Date: 20060719
  Receipt Date: 20060717
  Transmission Date: 20061208
  Serious: Yes (Hospitalization)
  Sender: FDA-Public Use
  Company Number: US-GLAXOSMITHKLINE-A0612481A

PATIENT
  Age: 49 Year
  Sex: Male

DRUGS (3)
  1. WELLBUTRIN XL [Suspect]
     Indication: DEPRESSION
     Dosage: 150MG PER DAY
     Route: 048
     Dates: end: 20060711
  2. MULTI-VITAMIN [Concomitant]
  3. OMEGA 3 FATTY ACIDS [Concomitant]

REACTIONS (6)
  - AMNESIA [None]
  - CONVULSION [None]
  - DRUG WITHDRAWAL SYNDROME [None]
  - MUSCLE TWITCHING [None]
  - SCREAMING [None]
  - TREMOR [None]
